FAERS Safety Report 4612374-7 (Version None)
Quarter: 2005Q1

REPORT INFORMATION
  Report Type: 
  Country: None (occurrence: None)
  Receive Date: 20050308
  Receipt Date: 20041220
  Transmission Date: 20050727
  Serious: Yes (Other)
  Sender: FDA-Public Use
  Company Number: 2004UW23594

PATIENT
  Age: 77 Year
  Sex: Male
  Weight: 73.7095 kg

DRUGS (12)
  1. CRESTOR [Suspect]
     Indication: BLOOD CHOLESTEROL INCREASED
     Dosage: 10 MG PO
     Route: 048
  2. COUMADIN [Concomitant]
  3. COREG [Concomitant]
  4. IMDUR [Concomitant]
  5. AMIODARONE [Concomitant]
  6. PREVACID [Concomitant]
  7. ASPIRIN [Concomitant]
  8. LASIX [Concomitant]
  9. LENOXIN [Concomitant]
  10. ALTACE [Concomitant]
  11. VITAMIN E [Concomitant]
  12. FOLIC ACID [Concomitant]

REACTIONS (2)
  - DIARRHOEA [None]
  - FLUSHING [None]
